FAERS Safety Report 6139330-4 (Version None)
Quarter: 2009Q2

REPORT INFORMATION
  Report Type: 
  Country: None (occurrence: None)
  Receive Date: 20090401
  Receipt Date: 20090324
  Transmission Date: 20091009
  Serious: Yes (Other)
  Sender: FDA-Public Use
  Company Number: PHHY2009FR05314

PATIENT
  Sex: Male
  Weight: 53 kg

DRUGS (3)
  1. EXELON [Suspect]
     Indication: DEMENTIA ALZHEIMER'S TYPE
     Dosage: 4.6 MG/DAY
     Route: 062
  2. FORLAX [Concomitant]
     Indication: CONSTIPATION
     Dosage: 10 G
     Dates: start: 20080112
  3. DEXTROSE 5% [Concomitant]
     Indication: DEHYDRATION
     Dosage: 1000 ML
     Route: 058
     Dates: start: 20080601

REACTIONS (4)
  - DERMATITIS CONTACT [None]
  - ERYTHEMA [None]
  - PRURITUS [None]
  - URTICARIA [None]
